FAERS Safety Report 19488401 (Version 2)
Quarter: 2021Q3

REPORT INFORMATION
  Report Type: Report from Study
  Country: US (occurrence: US)
  Receive Date: 20210702
  Receipt Date: 20210914
  Transmission Date: 20211014
  Serious: Yes (Other)
  Sender: FDA-Public Use
  Company Number: US-MYLANLABS-2021M1037412

PATIENT
  Sex: Female
  Weight: 52 kg

DRUGS (1)
  1. GLATIRAMER ACETATE INJECTION [Suspect]
     Active Substance: GLATIRAMER ACETATE
     Indication: MULTIPLE SCLEROSIS
     Dosage: 40 MILLIGRAM, Q3W
     Route: 058

REACTIONS (6)
  - Loss of consciousness [Unknown]
  - Orthostatic hypotension [Unknown]
  - Maternal exposure during pregnancy [Unknown]
  - Product substitution issue [Unknown]
  - Fall [Unknown]
  - Syncope [Unknown]
